FAERS Safety Report 23555008 (Version 1)
Quarter: 2024Q1

REPORT INFORMATION
  Report Type: Spontaneous
  Country: US (occurrence: None)
  Receive Date: 20240222
  Receipt Date: 20240222
  Transmission Date: 20240410
  Serious: Yes (Hospitalization)
  Sender: FDA-Public Use
  Company Number: None

PATIENT
  Age: 55 Year
  Sex: Female

DRUGS (1)
  1. TEMOZOLOMIDE [Suspect]
     Active Substance: TEMOZOLOMIDE
     Indication: Thrombocytopenia
     Dosage: OTHER QUANTITY : 140 AND 180MG;?FREQUENCY : DAILY;?
     Route: 001

REACTIONS (1)
  - Hospitalisation [None]
